FAERS Safety Report 25104028 (Version 1)
Quarter: 2025Q1

REPORT INFORMATION
  Report Type: Spontaneous
  Country: IN (occurrence: IN)
  Receive Date: 20250321
  Receipt Date: 20250321
  Transmission Date: 20250409
  Serious: Yes (Hospitalization, Other)
  Sender: MACLEODS
  Company Number: IN-MACLEODS PHARMA-MAC2025052168

PATIENT

DRUGS (1)
  1. PANTOPRAZOLE [Suspect]
     Active Substance: PANTOPRAZOLE
     Indication: Product used for unknown indication
     Dosage: 40 MG DAILY FOR OVER 10 YEARS
     Route: 065

REACTIONS (6)
  - Diabetes mellitus [Recovering/Resolving]
  - Pyrexia [Unknown]
  - Seizure [Recovering/Resolving]
  - Hyponatraemia [Recovering/Resolving]
  - Hypocalcaemia [Recovered/Resolved]
  - Hypomagnesaemia [Recovered/Resolved]
